FAERS Safety Report 6409396-2 (Version None)
Quarter: 2009Q4

REPORT INFORMATION
  Report Type: 
  Country: None (occurrence: None)
  Receive Date: 20091019
  Receipt Date: 20091019
  Transmission Date: 20100525
  Serious: Yes (Other)
  Sender: FDA-Public Use
  Company Number: None

PATIENT
  Sex: Female
  Weight: 85.5 kg

DRUGS (2)
  1. LOVENOX [Suspect]
     Indication: THROMBOSIS PROPHYLAXIS
     Dosage: 40 MG QD SC
     Route: 058
     Dates: start: 20091008, end: 20091010
  2. UFH [Suspect]
     Indication: THROMBOSIS PROPHYLAXIS
     Dosage: UFH 5000 UNITS BID SC
     Route: 058
     Dates: start: 20091011

REACTIONS (1)
  - PLATELET COUNT DECREASED [None]
